FAERS Safety Report 12081645 (Version 5)
Quarter: 2016Q2

REPORT INFORMATION
  Report Type: Report from Study
  Country: FI (occurrence: FI)
  Receive Date: 20160216
  Receipt Date: 20160629
  Transmission Date: 20160815
  Serious: Yes (Hospitalization)
  Sender: FDA-Public Use
  Company Number: FI-ABBVIE-16P-055-1551154-00

PATIENT
  Age: 73 Year
  Sex: Male
  Weight: 61 kg

DRUGS (3)
  1. MINISUN [Concomitant]
     Indication: PRODUCT USED FOR UNKNOWN INDICATION
     Route: 048
  2. SPARTOFER [Concomitant]
     Indication: MINERAL SUPPLEMENTATION
     Route: 048
  3. DUODOPA [Suspect]
     Active Substance: CARBIDOPA\LEVODOPA
     Indication: PARKINSON^S DISEASE
     Dosage: CD 3.5-3.8ML; 2.4ML/HR
     Route: 050
     Dates: start: 201206

REACTIONS (10)
  - Arthropathy [Unknown]
  - General physical health deterioration [Unknown]
  - Fall [Unknown]
  - Dyskinesia [Not Recovered/Not Resolved]
  - Pneumonia [Unknown]
  - Confusional state [Unknown]
  - Dyskinesia [Unknown]
  - Osteoarthritis [Unknown]
  - Drug effect decreased [Unknown]
  - Joint dislocation [Recovering/Resolving]

NARRATIVE: CASE EVENT DATE: 201409
